FAERS Safety Report 6596073-0 (Version None)
Quarter: 2010Q1

REPORT INFORMATION
  Report Type: 
  Country: None (occurrence: None)
  Receive Date: 20100219
  Receipt Date: 20100219
  Transmission Date: 20100710
  Serious: Yes (Hospitalization)
  Sender: FDA-Public Use
  Company Number: None

PATIENT
  Age: 49 Year
  Sex: Male

DRUGS (2)
  1. GABAPENTIN [Suspect]
     Indication: PAIN
     Dosage: 300 MG TID PO
     Route: 048
     Dates: start: 20090319, end: 20090323
  2. GABAPENTIN [Suspect]
     Dosage: 500 MG TID PO
     Route: 048
     Dates: start: 20090311, end: 20090319

REACTIONS (1)
  - HEPATIC ENZYME INCREASED [None]
